FAERS Safety Report 6917318-0 (Version None)
Quarter: 2010Q3

REPORT INFORMATION
  Report Type: 
  Country: None (occurrence: None)
  Receive Date: 20100805
  Receipt Date: 20100723
  Transmission Date: 20110219
  Serious: Yes (Death)
  Sender: FDA-Public Use
  Company Number: 2010PL000087

PATIENT
  Age: 18 Year
  Sex: Male
  Weight: 75.2971 kg

DRUGS (4)
  1. MERCAPTOPURINE [Suspect]
     Indication: CROHN'S DISEASE
  2. CIMZIA [Suspect]
     Indication: CROHN'S DISEASE
     Dates: start: 20091120
  3. ZOLOFT [Concomitant]
  4. TRAMADOL [Concomitant]

REACTIONS (3)
  - PNEUMONIA [None]
  - TREATMENT NONCOMPLIANCE [None]
  - UNRESPONSIVE TO STIMULI [None]
